FAERS Safety Report 8474358-0 (Version None)
Quarter: 2012Q2

REPORT INFORMATION
  Report Type: 
  Country: None (occurrence: None)
  Receive Date: 20120628
  Receipt Date: 20110908
  Transmission Date: 20120825
  Serious: Yes (Other)
  Sender: FDA-Public Use
  Company Number: US-MYLANLABS-2011S1014706

PATIENT
  Age: 34 Year
  Sex: Male
  Weight: 91.17 kg

DRUGS (5)
  1. NEXIUM [Concomitant]
  2. WELLBUTRIN [Concomitant]
  3. LITHIUM CARBONATE [Concomitant]
     Indication: WHITE BLOOD CELL COUNT
  4. LEVOTHYROXINE [Concomitant]
  5. CLOZAPINE [Suspect]
     Indication: SCHIZOAFFECTIVE DISORDER
     Dates: start: 20051201, end: 20110725

REACTIONS (2)
  - LEUKOPENIA [None]
  - GRANULOCYTOPENIA [None]
